FAERS Safety Report 5843148-7 (Version None)
Quarter: 2008Q3

REPORT INFORMATION
  Report Type: 
  Country: None (occurrence: None)
  Receive Date: 20080813
  Receipt Date: 20080806
  Transmission Date: 20090109
  Serious: Yes (Other)
  Sender: FDA-Public Use
  Company Number: KR-ASTRAZENECA-2008AC02141

PATIENT
  Age: 76 Year
  Sex: Female

DRUGS (4)
  1. ATACAND [Suspect]
     Route: 048
     Dates: start: 20050201, end: 20051201
  2. DRUGS FOR DIABETES [Concomitant]
     Indication: DIABETES MELLITUS
  3. DRUGS FOR HYPERTENSION [Concomitant]
     Indication: HYPERTENSION
  4. DRUGS FOR HYPERLIPIDAEMIA [Concomitant]
     Indication: HYPERLIPIDAEMIA

REACTIONS (1)
  - PEMPHIGUS [None]
